FAERS Safety Report 10427040 (Version 1)
Quarter: 2014Q3

REPORT INFORMATION
  Report Type: Spontaneous
  Country: US (occurrence: None)
  Receive Date: 20140902
  Receipt Date: 20140902
  Transmission Date: 20150326
  Serious: No
  Sender: FDA-Public Use
  Company Number: None

PATIENT
  Age: 39 Year
  Sex: Female

DRUGS (1)
  1. DULOXETINE HYDROCHLORIDE 60 MG [Suspect]
     Active Substance: DULOXETINE HYDROCHLORIDE
     Indication: FIBROMYALGIA
     Dosage: 1 PILL  PER DAY  ONCE DAILY  TAKEN BY MOUTH
     Route: 048

REACTIONS (6)
  - Fibromyalgia [None]
  - Product substitution issue [None]
  - Economic problem [None]
  - Anxiety [None]
  - Drug ineffective [None]
  - Depression [None]

NARRATIVE: CASE EVENT DATE: 20140829
